FAERS Safety Report 8530635-6 (Version None)
Quarter: 2012Q3

REPORT INFORMATION
  Report Type: 
  Country: None (occurrence: None)
  Receive Date: 20120723
  Receipt Date: 20120711
  Transmission Date: 20120928
  Serious: Yes (Other)
  Sender: FDA-Public Use
  Company Number: US-ROCHE-1058468

PATIENT
  Sex: Male

DRUGS (1)
  1. ZELBORAF [Suspect]
     Indication: PRODUCT USED FOR UNKNOWN INDICATION

REACTIONS (12)
  - PRURITUS [None]
  - ERYTHEMA [None]
  - SUNBURN [None]
  - DYSGEUSIA [None]
  - BLISTER [None]
  - ALOPECIA [None]
  - MASS [None]
  - FATIGUE [None]
  - PULMONARY THROMBOSIS [None]
  - NAUSEA [None]
  - CHEST PAIN [None]
  - ASTHENIA [None]
